FAERS Safety Report 5009683-9 (Version None)
Quarter: 2006Q2

REPORT INFORMATION
  Report Type: 
  Country: None (occurrence: None)
  Receive Date: 20060522
  Receipt Date: 20060510
  Transmission Date: 20061013
  Serious: Yes (Other)
  Sender: FDA-Public Use
  Company Number: IT-GDP-0613152

PATIENT
  Age: 16 Year
  Sex: Female

DRUGS (2)
  1. DIFFERIN [Suspect]
     Indication: COMEDONE
  2. CLINDAMYCIN [Suspect]
     Indication: COMEDONE

REACTIONS (2)
  - PHOTOSENSITIVITY REACTION [None]
  - VISUAL DISTURBANCE [None]
